FAERS Safety Report 25582817 (Version 1)
Quarter: 2025Q3

REPORT INFORMATION
  Report Type: Report from Study
  Country: US (occurrence: US)
  Receive Date: 20250720
  Receipt Date: 20250720
  Transmission Date: 20251021
  Serious: Yes (Other)
  Sender: ABBVIE
  Company Number: US-ABBVIE-5832444

PATIENT
  Age: 48 Year
  Sex: Female

DRUGS (1)
  1. SKYRIZI [Suspect]
     Active Substance: RISANKIZUMAB-RZAA
     Indication: Psoriasis
     Route: 058
     Dates: start: 20221117, end: 202501

REACTIONS (6)
  - Surgery [Unknown]
  - Alopecia [Unknown]
  - Stress [Unknown]
  - Arthralgia [Not Recovered/Not Resolved]
  - Candida infection [Unknown]
  - Autism spectrum disorder [Unknown]

NARRATIVE: CASE EVENT DATE: 20240708
